FAERS Safety Report 9706784 (Version 1)
Quarter: 2013Q4

REPORT INFORMATION
  Report Type: Report from Study
  Country: AU (occurrence: AU)
  Receive Date: 20131125
  Receipt Date: 20131125
  Transmission Date: 20140711
  Serious: Yes (Other)
  Sender: FDA-Public Use
  Company Number: PHHY2013AU134061

PATIENT
  Sex: Female

DRUGS (15)
  1. ACLASTA [Suspect]
     Dosage: 5 MG/100 ML, UNK
     Route: 042
     Dates: start: 20121003
  2. ACLASTA [Suspect]
     Dosage: 5 MG/100 ML, UNK
     Route: 042
     Dates: start: 20121213
  3. AMITRIPTYLINE HYDROCHLORIDE [Concomitant]
     Dosage: 1 DF, DAILY MDU
  4. ASPIRIN (E.C.) [Concomitant]
     Dosage: 1 DF, DAILY MDU
  5. CALTRATE D PLUS MINERALS [Concomitant]
     Dosage: 1 DF, DAILY MDU (EQUIVALENT TO 600 MG CA/400 UNITS/50 MG/7.5 MG/0.5 MG/ 1.8 MG)
  6. INZA                               /00384601/ [Concomitant]
     Dosage: 1 DF, BID (MDU)
  7. IRBESARTAN RANBAXY [Concomitant]
     Dosage: 1 DF, DAILY MDU
  8. OVESTIN [Concomitant]
     Dosage: 1 MG/G NOCTE PRN
  9. PANADOL OSTEO [Concomitant]
     Dosage: 2 DF, TID NOCTE MDU
  10. PERIACTIN [Concomitant]
     Dosage: 1 DF, TID, MDU
  11. PROPRANOLOL HYDROCHLORIDE [Concomitant]
     Dosage: 1 DF, DAILY MDU
  12. RANITIDINE//RANITIDINE HYDROCHLORIDE [Concomitant]
     Dosage: 1 DF, DAILY MDU
  13. SIMVASTATIN [Concomitant]
     Dosage: 1 DF, DAILY MDU
  14. TEMAZE [Concomitant]
     Dosage: 1 DF, NOCTE PRN
  15. THYROXINE SODIUM [Concomitant]
     Dosage: 1 DF, DAILY MDU

REACTIONS (9)
  - Cerebrovascular accident [Unknown]
  - Hypothyroidism [Unknown]
  - Atrophic vulvovaginitis [Unknown]
  - Osteoporosis [Unknown]
  - Urinary incontinence [Unknown]
  - Osteoarthritis [Unknown]
  - Hyperlipidaemia [Unknown]
  - Inappropriate schedule of drug administration [Unknown]
  - Hypertension [Unknown]
